FAERS Safety Report 8714193 (Version 4)
Quarter: 2012Q4

REPORT INFORMATION
  Report Type: 
  Country: AU (occurrence: AU)
  Receive Date: 20120809
  Receipt Date: 20121125
  Transmission Date: 20130627
  Serious: Yes (Death, Hospitalization, Other)
  Sender: FDA-Public Use
  Company Number: AU-AMGEN-AUSSP2012049207

PATIENT
  Age: 79 Year
  Sex: Female
  Weight: 52.5 kg

DRUGS (4)
  1. PROLIA [Suspect]
     Indication: OSTEOPOROSIS POSTMENOPAUSAL
     Dosage: 60 mg, q6mo
     Route: 058
     Dates: start: 20110305, end: 20110305
  2. SEVELAMER [Suspect]
     Indication: BLOOD PHOSPHORUS INCREASED
     Dosage: 800 mg, UNK
     Route: 048
  3. CHOLECALCIFEROL [Concomitant]
     Indication: VITAMIN D DECREASED
     Dosage: 1000 IU, qd
     Route: 048
  4. LERCANIDIPINE [Concomitant]
     Indication: HYPERTENSION
     Dosage: 20 mg, qd
     Route: 048

REACTIONS (11)
  - Blood parathyroid hormone increased [Unknown]
  - Cutaneous vasculitis [Recovering/Resolving]
  - Oedema peripheral [Recovering/Resolving]
  - Hypophosphataemia [Recovered/Resolved]
  - Compartment syndrome [Unknown]
  - Peripheral vascular disorder [Unknown]
  - Laboratory test abnormal [Unknown]
  - Hypocalcaemia [Recovered/Resolved]
  - Cardiac arrest [Fatal]
  - Pneumonia aspiration [Fatal]
  - Alopecia [Unknown]
